FAERS Safety Report 5416228-8 (Version None)
Quarter: 2007Q3

REPORT INFORMATION
  Report Type: 
  Country: None (occurrence: None)
  Receive Date: 20070718
  Receipt Date: 20070308
  Transmission Date: 20080115
  Serious: Yes (Other)
  Sender: FDA-Public Use
  Company Number: 2007009443

PATIENT
  Age: 51 Year
  Sex: Female
  Weight: 62.1 kg

DRUGS (3)
  1. CELEBREX [Suspect]
     Indication: HUMERUS FRACTURE
     Dosage: (200 MG, 3 IN 1 D)
  2. CELEBREX [Suspect]
     Indication: PERIARTHRITIS
     Dosage: (200 MG, 3 IN 1 D)
  3. CELEBREX [Suspect]
     Indication: SHOULDER OPERATION
     Dosage: (200 MG, 3 IN 1 D)

REACTIONS (1)
  - RECTAL HAEMORRHAGE [None]
